FAERS Safety Report 10312856 (Version 1)
Quarter: 2014Q3

REPORT INFORMATION
  Report Type: Spontaneous
  Country: CA (occurrence: US)
  Receive Date: 20140718
  Receipt Date: 20140718
  Transmission Date: 20150326
  Serious: Yes (Hospitalization)
  Sender: FDA-Public Use
  Company Number: CA-SUN PHARMACEUTICAL INDUSTRIES LTD-2014SUN01557

PATIENT
  Age: 14 Month
  Sex: Male

DRUGS (1)
  1. DONEPEZIL HYDROCHLORIDE TABLETS, 10MG [Suspect]
     Active Substance: DONEPEZIL HYDROCHLORIDE
     Indication: PRODUCT USED FOR UNKNOWN INDICATION
     Dosage: 10 MG, SINGLE
     Route: 048

REACTIONS (14)
  - Rash erythematous [Recovered/Resolved]
  - Bradycardia [Recovered/Resolved]
  - Drooling [Recovered/Resolved]
  - Fall [None]
  - Somnolence [Recovered/Resolved]
  - Accidental exposure to product by child [Recovered/Resolved]
  - Agitation [None]
  - Accidental overdose [Recovered/Resolved]
  - Crying [None]
  - Vomiting [Recovered/Resolved]
  - Diarrhoea [Recovered/Resolved]
  - Gait disturbance [None]
  - Mental status changes [Recovered/Resolved]
  - Irritability [Recovered/Resolved]
